FAERS Safety Report 8249219-2 (Version None)
Quarter: 2012Q1

REPORT INFORMATION
  Report Type: 
  Country: None (occurrence: None)
  Receive Date: 20120327
  Receipt Date: 20120312
  Transmission Date: 20120608
  Serious: Yes (Other)
  Sender: FDA-Public Use
  Company Number: 2012-024395

PATIENT
  Age: 84 Year
  Sex: Female
  Weight: 54 kg

DRUGS (7)
  1. COUMADIN [Concomitant]
  2. DIGOXIN (DIGOXINN) [DIGOXIN]) [Concomitant]
  3. PRAVACHOL [Concomitant]
  4. UNCODEABLE ^UNCLASSIFIABLE^ (UNCODEABLE ^UNCLASSIFIABLE^) [Concomitant]
  5. CENTRUM SILVER (CENTRUM SILVER) [Concomitant]
  6. TOPROL-XL [Concomitant]
  7. ASPIRIN [Suspect]
     Indication: ISCHAEMIC HEART DISEASE PROPHYLAXIS
     Dosage: BOTTLE COUNT 150, ORAL
     Route: 048
     Dates: start: 20120201, end: 20120310

REACTIONS (3)
  - MALAISE [None]
  - TINNITUS [None]
  - EPISTAXIS [None]
